FAERS Safety Report 8877389 (Version 1)
Quarter: 2012Q4

REPORT INFORMATION
  Report Type: Spontaneous
  Country: US (occurrence: None)
  Receive Date: 20121026
  Receipt Date: 20121026
  Transmission Date: 20130627
  Serious: Yes (Death)
  Sender: FDA-Public Use
  Company Number: 1459691

PATIENT
  Age: 22 Month
  Sex: Female

DRUGS (3)
  1. VANCOMYCIN HYDROCHLORIDE [Suspect]
     Indication: PERICARDITIS
     Route: 042
  2. VANCOMYCIN HYDROCHLORIDE [Suspect]
     Indication: METHICILLIN-RESISTANT STAPHYLOCOCCAL AUREUS INFECTION
     Route: 042
  3. VANCOMYCIN HYDROCHLORIDE [Suspect]
     Indication: BACTEREMIA
     Route: 042

REACTIONS (5)
  - Drug reaction with eosinophilia and systemic symptoms [None]
  - Myocarditis [None]
  - Cardiac arrest [None]
  - Respiratory arrest [None]
  - Cardiac failure congestive [None]
